FAERS Safety Report 21173357 (Version 1)
Quarter: 2022Q3

REPORT INFORMATION
  Report Type: Spontaneous
  Country: US (occurrence: None)
  Receive Date: 20220804
  Receipt Date: 20220804
  Transmission Date: 20221026
  Serious: Yes (Life-Threatening, Hospitalization)
  Sender: FDA-Public Use
  Company Number: None

PATIENT
  Age: 84 Year
  Sex: Male
  Weight: 73.35 kg

DRUGS (2)
  1. ADALAT CC [Suspect]
     Active Substance: NIFEDIPINE
     Indication: Hypertension
     Dosage: FREQUENCY : TWICE A DAY;?
     Route: 048
  2. PAXLOVID [Suspect]
     Active Substance: NIRMATRELVIR\RITONAVIR
     Indication: COVID-19
     Dosage: FREQUENCY : TWICE A DAY;?
     Route: 048
     Dates: start: 20220702, end: 20220706

REACTIONS (5)
  - Acute kidney injury [None]
  - Confusional state [None]
  - Hypotension [None]
  - Atrioventricular block [None]
  - Bradycardia [None]

NARRATIVE: CASE EVENT DATE: 20220705
